FAERS Safety Report 4866683-7 (Version None)
Quarter: 2005Q4

REPORT INFORMATION
  Report Type: 
  Country: None (occurrence: None)
  Receive Date: 20051221
  Receipt Date: 20051215
  Transmission Date: 20060501
  Serious: Yes (Hospitalization)
  Sender: FDA-Public Use
  Company Number: 2005168446

PATIENT
  Age: 28 Year
  Sex: Female
  Weight: 60 kg

DRUGS (1)
  1. MISOPROSTOL [Suspect]
     Indication: ILL-DEFINED DISORDER
     Dosage: 800 MG (200 MCG, INTERVAL: TOTAL), ORAL
     Route: 048
     Dates: start: 20051018, end: 20051018

REACTIONS (4)
  - DYSPHAGIA [None]
  - FOREIGN BODY TRAUMA [None]
  - OESOPHAGITIS ULCERATIVE [None]
  - SOMNOLENCE [None]
